FAERS Safety Report 24917928 (Version 1)
Quarter: 2025Q1

REPORT INFORMATION
  Report Type: Report from Study
  Country: US (occurrence: US)
  Receive Date: 20250203
  Receipt Date: 20250203
  Transmission Date: 20250408
  Serious: Yes (Death, Other)
  Sender: MYLAN
  Company Number: US-MYLANLABS-2024M1113385

PATIENT
  Sex: Female
  Weight: 114.76 kg

DRUGS (17)
  1. REVATIO [Suspect]
     Active Substance: SILDENAFIL CITRATE
     Indication: Pulmonary arterial hypertension
     Dosage: 20 MILLIGRAM, TID (THREE TIMES A DAY)
     Route: 048
     Dates: start: 2024
  2. TYVASO [Suspect]
     Active Substance: TREPROSTINIL
     Indication: Pulmonary arterial hypertension
     Dosage: 60 MICROGRAM, QID
     Route: 055
     Dates: end: 2024
  3. TYVASO [Suspect]
     Active Substance: TREPROSTINIL
     Dosage: 60 MICROGRAM, QID
     Route: 055
     Dates: start: 2024
  4. TYVASO [Suspect]
     Active Substance: TREPROSTINIL
     Route: 055
     Dates: start: 202103
  5. ELIQUIS [Suspect]
     Active Substance: APIXABAN
     Indication: Cerebrovascular accident prophylaxis
     Route: 065
  6. OPSUMIT [Suspect]
     Active Substance: MACITENTAN
     Indication: Product used for unknown indication
     Route: 065
  7. WARFARIN SODIUM [Concomitant]
     Active Substance: WARFARIN SODIUM
     Route: 065
  8. TYLENOL [Concomitant]
     Active Substance: ACETAMINOPHEN
     Route: 065
  9. LASIX [Concomitant]
     Active Substance: FUROSEMIDE
     Route: 065
  10. LASIX [Concomitant]
     Active Substance: FUROSEMIDE
     Dosage: 40 MILLIGRAM, QD
     Route: 065
  11. TOPROL XL [Concomitant]
     Active Substance: METOPROLOL SUCCINATE
     Indication: Heart rate abnormal
     Route: 065
  12. PRILOSEC [Concomitant]
     Active Substance: OMEPRAZOLE MAGNESIUM
     Route: 065
  13. ALTACE [Concomitant]
     Active Substance: RAMIPRIL
     Route: 065
  14. ZOCOR [Concomitant]
     Active Substance: SIMVASTATIN
     Route: 065
  15. SPIRIVA RESPIMAT [Concomitant]
     Active Substance: TIOTROPIUM BROMIDE
     Route: 065
  16. KENALOG [Concomitant]
     Active Substance: TRIAMCINOLONE ACETONIDE
     Route: 065
  17. OXYGEN [Concomitant]
     Active Substance: OXYGEN
     Route: 065

REACTIONS (2)
  - Death [Fatal]
  - Laryngitis [Unknown]

NARRATIVE: CASE EVENT DATE: 20240101
